FAERS Safety Report 9365735 (Version 1)
Quarter: 2013Q2

REPORT INFORMATION
  Report Type: Spontaneous
  Country: US (occurrence: US)
  Receive Date: 20130625
  Receipt Date: 20130625
  Transmission Date: 20140414
  Serious: No
  Sender: FDA-Public Use
  Company Number: US-009507513-1306USA010804

PATIENT
  Sex: Female

DRUGS (1)
  1. AZASITE [Suspect]
     Indication: LACRIMATION INCREASED
     Dosage: ONE DROP IN EACH EYE, QD
     Route: 031
     Dates: start: 20130603

REACTIONS (3)
  - Off label use [Unknown]
  - Inappropriate schedule of drug administration [Unknown]
  - No adverse event [Unknown]
